FAERS Safety Report 20514890 (Version 1)
Quarter: 2022Q1

REPORT INFORMATION
  Report Type: Spontaneous
  Country: US (occurrence: US)
  Receive Date: 20220224
  Receipt Date: 20220224
  Transmission Date: 20220423
  Serious: No
  Sender: FDA-Public Use
  Company Number: US-SA-SAC20220217001133

PATIENT
  Age: 63 Year
  Sex: Female

DRUGS (15)
  1. DUPIXENT [Suspect]
     Active Substance: DUPILUMAB
     Indication: Asthma
     Dosage: 300 MG, QOW
     Route: 058
     Dates: start: 20220104
  2. FUROSEMIDE [Concomitant]
     Active Substance: FUROSEMIDE
  3. PREDNISONE [Concomitant]
     Active Substance: PREDNISONE
  4. SIMVASTATIN [Concomitant]
     Active Substance: SIMVASTATIN
  5. OMEPRAZOLE [Concomitant]
     Active Substance: OMEPRAZOLE
  6. BUDESONIDE [Concomitant]
     Active Substance: BUDESONIDE
  7. METAXALONE [Concomitant]
     Active Substance: METAXALONE
  8. AMITRIPTYLINE [Concomitant]
     Active Substance: AMITRIPTYLINE
  9. LEVALBUTEROL HYDROCHLORIDE [Concomitant]
     Active Substance: LEVALBUTEROL HYDROCHLORIDE
  10. NYSTATIN [Concomitant]
     Active Substance: NYSTATIN
  11. FLUCONAZOLE [Concomitant]
     Active Substance: FLUCONAZOLE
  12. AMOXICILLIN [Concomitant]
     Active Substance: AMOXICILLIN
  13. AZITHROMYCIN [Concomitant]
     Active Substance: AZITHROMYCIN
  14. WIXELA INHUB [Concomitant]
     Active Substance: FLUTICASONE PROPIONATE\SALMETEROL XINAFOATE
     Indication: Asthma
  15. HYDROCHLOROTHIAZIDE [Concomitant]
     Active Substance: HYDROCHLOROTHIAZIDE

REACTIONS (8)
  - Pain [Unknown]
  - Arthralgia [Unknown]
  - Cough [Recovering/Resolving]
  - Wheezing [Unknown]
  - Dyspnoea [Unknown]
  - Chest discomfort [Unknown]
  - Intervertebral disc protrusion [Unknown]
  - Product use issue [Unknown]
